FAERS Safety Report 4749906-4 (Version None)
Quarter: 2005Q3

REPORT INFORMATION
  Report Type: 
  Country: None (occurrence: None)
  Receive Date: 20050822
  Receipt Date: 20050809
  Transmission Date: 20060218
  Serious: Yes (Other)
  Sender: FDA-Public Use
  Company Number: 2005114429

PATIENT
  Sex: Female

DRUGS (2)
  1. SINEQUAN [Suspect]
     Indication: ILL-DEFINED DISORDER
     Dosage: 50 MG (1 IN1 1 D), ORAL
     Route: 048
     Dates: start: 19950101, end: 20050601
  2. ZOLOFT [Suspect]
     Indication: ILL-DEFINED DISORDER
     Dosage: 50 MG (50 MG, 1 IN 1 D), ORAL
     Route: 048
     Dates: start: 19950101

REACTIONS (7)
  - COGNITIVE DISORDER [None]
  - DIFFICULTY IN WALKING [None]
  - DIZZINESS [None]
  - HYPOAESTHESIA [None]
  - NAUSEA [None]
  - PARAESTHESIA [None]
  - VISION BLURRED [None]
